FAERS Safety Report 4556674-8 (Version None)
Quarter: 2005Q1

REPORT INFORMATION
  Report Type: 
  Country: None (occurrence: None)
  Receive Date: 20050118
  Receipt Date: 20050104
  Transmission Date: 20050727
  Serious: Yes (Hospitalization, Other)
  Sender: FDA-Public Use
  Company Number: HQWYE398905JAN05

PATIENT
  Age: 54 Year
  Sex: Female
  Weight: 83.54 kg

DRUGS (8)
  1. PREMARIN [Suspect]
     Indication: OESTROGEN REPLACEMENT THERAPY
     Dosage: SEE IMAGE
     Route: 048
     Dates: start: 19790101, end: 19810101
  2. PREMARIN [Suspect]
     Indication: OESTROGEN REPLACEMENT THERAPY
     Dosage: SEE IMAGE
     Route: 048
     Dates: start: 20000101, end: 20000101
  3. SYNTHROID [Concomitant]
  4. INSULIN [Concomitant]
  5. COREG [Concomitant]
  6. MAVIK [Concomitant]
  7. PREVACID [Concomitant]
  8. PLETAL [Concomitant]

REACTIONS (3)
  - DIALYSIS [None]
  - RENAL FAILURE [None]
  - THROMBOSIS [None]
